FAERS Safety Report 25518553 (Version 2)
Quarter: 2025Q3

REPORT INFORMATION
  Report Type: Report from Study
  Country: AU (occurrence: AU)
  Receive Date: 20250704
  Receipt Date: 20250813
  Transmission Date: 20251020
  Serious: Yes (Other)
  Sender: CELLTRION
  Company Number: AU-CELLTRION INC.-2025AU021144

PATIENT

DRUGS (2)
  1. ADALIMUMAB-AATY [Suspect]
     Active Substance: ADALIMUMAB-AATY
     Indication: Crohn^s disease
     Dosage: 40 MG PRE-FILLED PEN FORTNIGHTLY S/C INJECTIONS
     Route: 058
     Dates: start: 20241024, end: 20250619
  2. ADALIMUMAB-AATY [Suspect]
     Active Substance: ADALIMUMAB-AATY

REACTIONS (4)
  - Feeling abnormal [Recovering/Resolving]
  - Impaired quality of life [Recovering/Resolving]
  - Liver disorder [Recovering/Resolving]
  - Dehydration [Recovering/Resolving]
